FAERS Safety Report 7299010-9 (Version None)
Quarter: 2011Q1

REPORT INFORMATION
  Report Type: 
  Country: None (occurrence: None)
  Receive Date: 20110217
  Receipt Date: 20110214
  Transmission Date: 20110831
  Serious: Yes (Other)
  Sender: FDA-Public Use
  Company Number: US-JNJFOC-20101102902

PATIENT
  Sex: Male
  Weight: 88 kg

DRUGS (3)
  1. ORAL ANTIBIOTICS [Concomitant]
     Indication: SKIN INFECTION
     Route: 048
  2. STELARA [Suspect]
     Indication: PSORIASIS
     Route: 058
  3. TOPICAL PREPARATIONS [Concomitant]
     Indication: PSORIASIS

REACTIONS (1)
  - COCCIDIOIDOMYCOSIS [None]
